FAERS Safety Report 23336021 (Version 1)
Quarter: 2023Q4

REPORT INFORMATION
  Report Type: Spontaneous
  Country: US (occurrence: US)
  Receive Date: 20231225
  Receipt Date: 20231225
  Transmission Date: 20240109
  Serious: No
  Sender: FDA-Public Use
  Company Number: US-SA-SAC20231219001239

PATIENT
  Sex: Female

DRUGS (23)
  1. DUPIXENT [Suspect]
     Active Substance: DUPILUMAB
     Indication: Dermatitis atopic
     Dosage: 300 MG, QOW
     Route: 058
     Dates: start: 20230420
  2. ACTEMRA [Concomitant]
     Active Substance: TOCILIZUMAB
  3. AZITHROMYCIN [Concomitant]
     Active Substance: AZITHROMYCIN
  4. CARDIZEM LA [Concomitant]
     Active Substance: DILTIAZEM HYDROCHLORIDE
  5. CLOBETASOL PROPIONATE [Concomitant]
     Active Substance: CLOBETASOL PROPIONATE
  6. EFFEXOR [Concomitant]
     Active Substance: VENLAFAXINE HYDROCHLORIDE
  7. FAMOTIDINE [Concomitant]
     Active Substance: FAMOTIDINE
  8. FOLIC ACID [Concomitant]
     Active Substance: FOLIC ACID
  9. LETROZOLE [Concomitant]
     Active Substance: LETROZOLE
  10. METHOTREXATE [Concomitant]
     Active Substance: METHOTREXATE
  11. OMEPRAZOLE [Concomitant]
     Active Substance: OMEPRAZOLE
  12. OXYBUTYNIN [Concomitant]
     Active Substance: OXYBUTYNIN
  13. PREGABALIN [Concomitant]
     Active Substance: PREGABALIN
  14. TIZANIDINE [Concomitant]
     Active Substance: TIZANIDINE
  15. SULFASALAZINE DELAYED-RELEASE [Concomitant]
     Active Substance: SULFASALAZINE
  16. IRON [Concomitant]
     Active Substance: IRON
  17. CLENPIQ [Concomitant]
     Active Substance: ANHYDROUS CITRIC ACID\MAGNESIUM OXIDE\SODIUM PICOSULFATE
  18. CHLORTHALIDONE [Concomitant]
     Active Substance: CHLORTHALIDONE
  19. CARDIZEM LA [Concomitant]
     Active Substance: DILTIAZEM HYDROCHLORIDE
  20. BETAMETH DIPROPIONATE [Concomitant]
  21. ASPIRIN [Concomitant]
     Active Substance: ASPIRIN
  22. AMITRIPTYLINE [Concomitant]
     Active Substance: AMITRIPTYLINE
  23. AMITRIPTYLINE [Concomitant]
     Active Substance: AMITRIPTYLINE

REACTIONS (5)
  - Infection [Unknown]
  - Sleep disorder due to a general medical condition [Unknown]
  - Stress [Unknown]
  - Product dose omission in error [Unknown]
  - Drug ineffective [Unknown]
